FAERS Safety Report 8565126-X (Version None)
Quarter: 2012Q3

REPORT INFORMATION
  Report Type: 
  Country: None (occurrence: None)
  Receive Date: 20120803
  Receipt Date: 20120731
  Transmission Date: 20120928
  Serious: No
  Sender: FDA-Public Use
  Company Number: US-PFIZER INC-2012171976

PATIENT
  Sex: Female

DRUGS (5)
  1. INLYTA [Suspect]
     Indication: METASTATIC RENAL CELL CARCINOMA
     Dosage: 5 MG, 2X/DAY
     Route: 048
  2. CLONIDINE [Concomitant]
     Dosage: AS NEEDED
  3. INLYTA [Suspect]
     Dosage: 7 MG, 2X/DAY
     Route: 048
  4. ATENOLOL [Concomitant]
     Dosage: UNK
  5. CARVEDILOL [Suspect]

REACTIONS (6)
  - PALMAR-PLANTAR ERYTHRODYSAESTHESIA SYNDROME [None]
  - HYPERTENSION [None]
  - DYSSTASIA [None]
  - ASTHENIA [None]
  - INTESTINAL MASS [None]
  - DECREASED APPETITE [None]
